FAERS Safety Report 6880955-6 (Version None)
Quarter: 2010Q2

REPORT INFORMATION
  Report Type: 
  Country: None (occurrence: None)
  Receive Date: 20100630
  Receipt Date: 20100209
  Transmission Date: 20101027
  Serious: Yes (Other)
  Sender: FDA-Public Use
  Company Number: 2010018757

PATIENT
  Age: 46 Year
  Sex: Male
  Weight: 66 kg

DRUGS (2)
  1. ZITHROMAX [Suspect]
     Dosage: 250 MG, 1X/DAY
     Dates: start: 20091123, end: 20091127
  2. BENADRYL [Suspect]
     Indication: HYPERSENSITIVITY

REACTIONS (8)
  - ABDOMINAL PAIN UPPER [None]
  - DIARRHOEA [None]
  - ENERGY INCREASED [None]
  - FLATULENCE [None]
  - HYPERSENSITIVITY [None]
  - PALPITATIONS [None]
  - PRURITUS [None]
  - RASH [None]
